FAERS Safety Report 8607326-6 (Version None)
Quarter: 2012Q3

REPORT INFORMATION
  Report Type: 
  Country: None (occurrence: None)
  Receive Date: 20120808
  Receipt Date: 20120802
  Transmission Date: 20120928
  Serious: Yes (Other)
  Sender: FDA-Public Use
  Company Number: 2012SA043322

PATIENT
  Age: 47 Year
  Sex: Female
  Weight: 57 kg

DRUGS (3)
  1. CAPZASIN HP CREME / UNKNOWN / UNKNOWN [Suspect]
     Indication: ARTHRITIS
     Dates: start: 20120602, end: 20120602
  2. LIPITOR [Concomitant]
  3. TOPROL-XL [Concomitant]

REACTIONS (3)
  - APPLICATION SITE PAIN [None]
  - APPLICATION SITE ERYTHEMA [None]
  - SCREAMING [None]
